FAERS Safety Report 4536303-X (Version None)
Quarter: 2004Q4

REPORT INFORMATION
  Report Type: 
  Country: None (occurrence: None)
  Receive Date: 20041223
  Receipt Date: 20040616
  Transmission Date: 20050328
  Serious: No
  Sender: FDA-Public Use
  Company Number: US-GLAXOSMITHKLINE-A0514892A

PATIENT
  Age: 18 Year
  Sex: Female

DRUGS (2)
  1. FLONASE [Suspect]
     Route: 045
  2. ALLEGRA-D [Concomitant]

REACTIONS (2)
  - EPISTAXIS [None]
  - SCAB [None]
